FAERS Safety Report 23837895 (Version 2)
Quarter: 2024Q3

REPORT INFORMATION
  Report Type: Spontaneous
  Country: DE (occurrence: DE)
  Receive Date: 20240509
  Receipt Date: 20240731
  Transmission Date: 20241016
  Serious: Yes (Other)
  Sender: MERCK
  Company Number: DE-009507513-2405DEU001704

PATIENT
  Age: 3 Month
  Sex: Male
  Weight: 5.2 kg

DRUGS (14)
  1. POSACONAZOLE [Suspect]
     Active Substance: POSACONAZOLE
     Indication: Prophylaxis
     Dosage: LOADING DOSE OF 2X 6MG/KG (2X30MG) ON THE 1ST DAY
     Route: 042
     Dates: start: 20240414
  2. POSACONAZOLE [Suspect]
     Active Substance: POSACONAZOLE
     Dosage: 1X6MG/KG DAILY
     Route: 042
     Dates: end: 20240421
  3. LETERMOVIR [Concomitant]
     Active Substance: LETERMOVIR
     Indication: Antiviral prophylaxis
     Dosage: 1X20 MG IV
     Dates: start: 20240414, end: 20240419
  4. CYCLOSPORINE [Concomitant]
     Active Substance: CYCLOSPORINE
     Indication: Immunosuppression
     Dosage: 2X12,5 MG DAILY IV
     Route: 042
     Dates: start: 20240410, end: 20240508
  5. VANCOMYCIN [Concomitant]
     Active Substance: VANCOMYCIN
     Indication: Anti-infective therapy
     Dosage: 4 X 100 MG IV (LEVEL ADAPTED)
     Route: 042
     Dates: start: 20240401, end: 20240419
  6. MEROPENEM [Concomitant]
     Active Substance: MEROPENEM
     Indication: Anti-infective therapy
     Dosage: 3X100MG IV
     Route: 042
     Dates: start: 20240401, end: 20240419
  7. ACYCLOVIR [Concomitant]
     Active Substance: ACYCLOVIR
     Indication: Antiviral prophylaxis
     Dosage: 3X67 MG IV
     Route: 042
     Dates: start: 20240414, end: 20240419
  8. ONDANSETRON [Concomitant]
     Active Substance: ONDANSETRON
  9. PANTOPRAZOLE [Concomitant]
     Active Substance: PANTOPRAZOLE
  10. URSODIOL [Concomitant]
     Active Substance: URSODIOL
  11. RIFAXIMIN [Concomitant]
     Active Substance: RIFAXIMIN
  12. AMLODIPINE [Concomitant]
     Active Substance: AMLODIPINE BESYLATE
  13. CHOLECALCIFEROL [Concomitant]
     Active Substance: CHOLECALCIFEROL
  14. MYCOPHENOLATE MOFETIL [Concomitant]
     Active Substance: MYCOPHENOLATE MOFETIL

REACTIONS (4)
  - Hepatic vein occlusion [Recovered/Resolved]
  - Renal failure [Recovered/Resolved]
  - Drug level increased [Recovered/Resolved]
  - Off label use [Unknown]

NARRATIVE: CASE EVENT DATE: 20240417
